FAERS Safety Report 8140914-2 (Version None)
Quarter: 2012Q1

REPORT INFORMATION
  Report Type: 
  Country: None (occurrence: None)
  Receive Date: 20120214
  Receipt Date: 20120214
  Transmission Date: 20120608
  Serious: No
  Sender: FDA-Public Use
  Company Number: None

PATIENT
  Age: 54 Year
  Sex: Male
  Weight: 63.7 kg

DRUGS (1)
  1. PEGINTERFERON [Suspect]
     Indication: HEPATITIS C
     Dosage: 180 MCG QWEEK SQ
     Route: 058
     Dates: start: 20110121, end: 20110603

REACTIONS (7)
  - POST-TRAUMATIC STRESS DISORDER [None]
  - DEPRESSION [None]
  - GASTRIC HAEMORRHAGE [None]
  - CONSTIPATION [None]
  - SEDATION [None]
  - LEUKOPENIA [None]
  - ANAEMIA [None]
